FAERS Safety Report 9514136 (Version 1)
Quarter: 2013Q3

REPORT INFORMATION
  Report Type: Spontaneous
  Country: FR (occurrence: FR)
  Receive Date: 20130910
  Receipt Date: 20130910
  Transmission Date: 20140515
  Serious: Yes (Hospitalization)
  Sender: FDA-Public Use
  Company Number: FR-WATSON-2013-16359

PATIENT
  Age: 72 Year
  Sex: Male

DRUGS (10)
  1. CARBOPLATIN (UNKNOWN) [Suspect]
     Indication: BLADDER CANCER
     Dosage: 391 MG, 1 TRIMESTER
     Route: 042
     Dates: start: 20130517, end: 20130517
  2. GEMCITABINE (UNKNOWN) [Suspect]
     Indication: BLADDER CANCER
     Dosage: 1.432 MG, 1 TRIMESTER
     Route: 042
     Dates: start: 20130517, end: 20130517
  3. FLECAINE [Concomitant]
     Indication: PRODUCT USED FOR UNKNOWN INDICATION
     Dosage: UNK, UNKNOWN
     Route: 065
  4. INEXIUM                            /01479302/ [Concomitant]
     Indication: PRODUCT USED FOR UNKNOWN INDICATION
     Dosage: UNK, UNKNOWN
     Route: 065
  5. PLAVIX [Concomitant]
     Indication: PRODUCT USED FOR UNKNOWN INDICATION
     Dosage: UNK, UNKNOWN
     Route: 065
  6. TAHOR [Concomitant]
     Indication: PRODUCT USED FOR UNKNOWN INDICATION
     Dosage: UNK, UNKNOWN
     Route: 065
  7. TOCO [Concomitant]
     Indication: PRODUCT USED FOR UNKNOWN INDICATION
     Dosage: UNK, UNKNOWN
     Route: 065
  8. ZARZIO [Concomitant]
     Indication: PRODUCT USED FOR UNKNOWN INDICATION
     Dosage: UNK, UNKNOWN
     Route: 065
  9. SOLU-MEDROL [Concomitant]
     Indication: PREMEDICATION
     Dosage: 120 MG, DAILY
     Route: 065
  10. ZOPHREN                            /00955301/ [Concomitant]
     Indication: PREMEDICATION
     Dosage: 8 MG, DAILY
     Route: 065

REACTIONS (1)
  - Oedema peripheral [Recovering/Resolving]
